FAERS Safety Report 15418623 (Version 4)
Quarter: 2018Q4

REPORT INFORMATION
  Report Type: Spontaneous
  Country: TH (occurrence: TH)
  Receive Date: 20180924
  Receipt Date: 20181013
  Transmission Date: 20190204
  Serious: Yes (Other)
  Sender: FDA-Public Use
  Company Number: PHHY2018TH101584

PATIENT
  Age: 50 Year
  Sex: Male

DRUGS (23)
  1. ATORVASTATIN [Suspect]
     Active Substance: ATORVASTATIN
     Indication: PRODUCT USED FOR UNKNOWN INDICATION
     Dosage: 1 DF, BID
     Route: 065
     Dates: start: 201712
  2. AMIODARONE [Suspect]
     Active Substance: AMIODARONE
     Dosage: UNK
     Route: 065
     Dates: start: 2017
  3. FUROSEMIDE. [Suspect]
     Active Substance: FUROSEMIDE
     Indication: PRODUCT USED FOR UNKNOWN INDICATION
     Dosage: UNK
     Route: 065
  4. FUROSEMIDE. [Suspect]
     Active Substance: FUROSEMIDE
     Dosage: 0.75 DF, QD
     Route: 065
  5. ENTRESTO [Suspect]
     Active Substance: SACUBITRIL\VALSARTAN
     Dosage: 2 DF (100 MG), UNK
     Route: 065
     Dates: start: 201807
  6. FUROSEMIDE. [Suspect]
     Active Substance: FUROSEMIDE
     Dosage: 0.5 DF, PRN
     Route: 065
     Dates: start: 201712
  7. ENALAPRIL [Suspect]
     Active Substance: ENALAPRIL
     Indication: PRODUCT USED FOR UNKNOWN INDICATION
     Dosage: 0.5 DF, UNK
     Route: 065
     Dates: start: 201712, end: 201712
  8. HYDRALAZINE [Suspect]
     Active Substance: HYDRALAZINE HYDROCHLORIDE
     Indication: PRODUCT USED FOR UNKNOWN INDICATION
     Dosage: 0.5 DF, UNK (1/2X3PC)
     Route: 065
     Dates: start: 201802
  9. DIGOXIN. [Suspect]
     Active Substance: DIGOXIN
     Indication: PRODUCT USED FOR UNKNOWN INDICATION
     Dosage: 0.25 DF, QD
     Route: 065
     Dates: start: 201802
  10. CARVEDILOL. [Suspect]
     Active Substance: CARVEDILOL
     Dosage: 2 DF, UNK
     Route: 065
     Dates: start: 201802
  11. WARFARIN [Suspect]
     Active Substance: WARFARIN
     Indication: PRODUCT USED FOR UNKNOWN INDICATION
     Dosage: 1 DF, UNK
     Route: 065
     Dates: start: 201712
  12. AMIODARONE [Suspect]
     Active Substance: AMIODARONE
     Indication: PRODUCT USED FOR UNKNOWN INDICATION
     Dosage: UNK
     Route: 065
     Dates: start: 2014
  13. SPIRONOLACTONE. [Suspect]
     Active Substance: SPIRONOLACTONE
     Indication: PRODUCT USED FOR UNKNOWN INDICATION
     Dosage: 1 DF, UNK
     Route: 065
     Dates: start: 201712
  14. CARVEDILOL. [Suspect]
     Active Substance: CARVEDILOL
     Indication: PRODUCT USED FOR UNKNOWN INDICATION
     Dosage: 2 DF, UNK
     Route: 065
     Dates: start: 201712
  15. FUROSEMIDE. [Suspect]
     Active Substance: FUROSEMIDE
     Dosage: 1.5 DF, BID
     Route: 065
     Dates: start: 2016
  16. CARVEDILOL. [Suspect]
     Active Substance: CARVEDILOL
     Dosage: 2 DF, UNK
     Route: 065
  17. TRIMETAZIDINE MR [Suspect]
     Active Substance: TRIMETAZIDINE DIHYDROCHLORIDE
     Indication: PRODUCT USED FOR UNKNOWN INDICATION
     Dosage: 2 DF, UNK
     Route: 065
  18. ISOSORBIDE MONONITRATE. [Suspect]
     Active Substance: ISOSORBIDE MONONITRATE
     Indication: PRODUCT USED FOR UNKNOWN INDICATION
     Dosage: 1 DF, UNK
     Route: 065
     Dates: start: 201802
  19. RIVAROXABAN [Suspect]
     Active Substance: RIVAROXABAN
     Dosage: 1 DF, UNK
     Route: 065
     Dates: start: 201807
  20. DIGOXIN. [Suspect]
     Active Substance: DIGOXIN
     Dosage: 0.25 DF, QD
     Route: 065
     Dates: end: 201807
  21. RIVAROXABAN [Suspect]
     Active Substance: RIVAROXABAN
     Indication: PRODUCT USED FOR UNKNOWN INDICATION
     Dosage: 1 DF, UNK
     Route: 065
     Dates: start: 201802
  22. ENTRESTO [Suspect]
     Active Substance: SACUBITRIL\VALSARTAN
     Indication: PRODUCT USED FOR UNKNOWN INDICATION
     Dosage: 2 DF (50 MG), UNK
     Route: 065
     Dates: start: 201712
  23. FUROSEMIDE. [Suspect]
     Active Substance: FUROSEMIDE
     Dosage: 0.5 DF, QD
     Route: 065

REACTIONS (8)
  - Ischaemic hepatitis [Unknown]
  - Cardiac failure [Unknown]
  - Heart rate decreased [Unknown]
  - Pulmonary oedema [Unknown]
  - Cardiogenic shock [Unknown]
  - Hypotension [Unknown]
  - Acute kidney injury [Unknown]
  - Blood creatine increased [Unknown]

NARRATIVE: CASE EVENT DATE: 201801
